FAERS Safety Report 16150121 (Version 3)
Quarter: 2020Q1

REPORT INFORMATION
  Report Type: Report from Study
  Country: US (occurrence: US)
  Receive Date: 20190403
  Receipt Date: 20200114
  Transmission Date: 20200409
  Serious: Yes (Hospitalization, Other)
  Sender: FDA-Public Use
  Company Number: US-GILEAD-2019-0399135

PATIENT
  Age: 71 Year
  Sex: Female

DRUGS (7)
  1. TADALAFIL. [Concomitant]
     Active Substance: TADALAFIL
  2. AMBRISENTAN [Suspect]
     Active Substance: AMBRISENTAN
     Indication: PULMONARY HYPERTENSION
     Dosage: 10 MG
     Route: 065
     Dates: start: 20180808
  3. FENOFIBRATE. [Concomitant]
     Active Substance: FENOFIBRATE
  4. LYRICA [Concomitant]
     Active Substance: PREGABALIN
  5. WARFARIN [Concomitant]
     Active Substance: WARFARIN
  6. BUPROPION. [Concomitant]
     Active Substance: BUPROPION
  7. AMBRISENTAN [Suspect]
     Active Substance: AMBRISENTAN
     Dosage: 5 MG, QD
     Route: 065
     Dates: start: 20180808

REACTIONS (7)
  - Compartment syndrome [Unknown]
  - Mechanical ventilation [Recovering/Resolving]
  - Shock [Unknown]
  - Colectomy [Unknown]
  - Pneumonia [Unknown]
  - Fall [Unknown]
  - Vocal cord disorder [Not Recovered/Not Resolved]

NARRATIVE: CASE EVENT DATE: 20190127
